FAERS Safety Report 6698764-X (Version None)
Quarter: 2010Q2

REPORT INFORMATION
  Report Type: 
  Country: None (occurrence: None)
  Receive Date: 20100427
  Receipt Date: 20100415
  Transmission Date: 20101027
  Serious: Yes (Hospitalization, Other)
  Sender: FDA-Public Use
  Company Number: PHEH2008US11660

PATIENT
  Sex: Male
  Weight: 92.517 kg

DRUGS (12)
  1. EXJADE [Suspect]
     Indication: SICKLE CELL ANAEMIA
     Dosage: 1500 MG, QD
     Route: 048
     Dates: start: 20071003, end: 20080212
  2. EXJADE [Suspect]
     Indication: IRON OVERLOAD
     Dosage: UNK
     Dates: end: 20080304
  3. LOVENOX [Concomitant]
     Dosage: 100 MG EVERY 12 HOUR
  4. COMPAZINE [Concomitant]
     Dosage: 10 MG EVERY 6 HR PRN
  5. ZINC [Concomitant]
     Dosage: 220 MG, QD
  6. REGLAN [Concomitant]
     Dosage: 10 MG, QID
  7. MAGNESIUM SULFATE [Concomitant]
     Dosage: 60 MG EVERY 2 HR PRN
  8. MS CONTIN [Concomitant]
     Dosage: 800 MG EVERY 8 HR
     Route: 048
  9. FOLIC ACID [Concomitant]
     Dosage: 4 MG, QD
     Route: 048
  10. LASIX [Concomitant]
     Dosage: 40 MG, BID
     Route: 048
  11. HYDREA [Concomitant]
     Dosage: 1500 MG, QD
     Route: 048
  12. NEXIUM [Concomitant]
     Dosage: 40 MG, QD
     Route: 048

REACTIONS (6)
  - PAIN [None]
  - RASH [None]
  - RASH MACULAR [None]
  - RASH PRURITIC [None]
  - SICKLE CELL ANAEMIA WITH CRISIS [None]
  - SKIN ULCER [None]
